FAERS Safety Report 19073536 (Version 1)
Quarter: 2021Q1

REPORT INFORMATION
  Report Type: Spontaneous
  Country: US (occurrence: US)
  Receive Date: 20210330
  Receipt Date: 20210330
  Transmission Date: 20210420
  Serious: Yes (Hospitalization)
  Sender: FDA-Public Use
  Company Number: None

PATIENT
  Age: 70 Year

DRUGS (6)
  1. FURESOMIDE [Concomitant]
     Dates: start: 20210315
  2. METOLAZONE. [Concomitant]
     Active Substance: METOLAZONE
     Dates: start: 20210315
  3. CIMZIA [Suspect]
     Active Substance: CERTOLIZUMAB PEGOL
     Indication: ESSENTIAL HYPERTENSION
     Route: 058
     Dates: start: 20210302
  4. FOLIC ACID. [Concomitant]
     Active Substance: FOLIC ACID
     Dates: start: 20210203
  5. NYSTATIN. [Concomitant]
     Active Substance: NYSTATIN
     Dates: start: 20210315
  6. FL UVASTATI N [Concomitant]
     Dates: start: 20210204

REACTIONS (1)
  - Spinal operation [None]

NARRATIVE: CASE EVENT DATE: 20201207
